FAERS Safety Report 24188569 (Version 1)
Quarter: 2024Q3

REPORT INFORMATION
  Report Type: Spontaneous
  Country: US (occurrence: US)
  Receive Date: 20240808
  Receipt Date: 20240808
  Transmission Date: 20241017
  Serious: No
  Sender: OTSUKA
  Company Number: US-OTSUKA-2023_029166

PATIENT
  Sex: Male
  Weight: 145.13 kg

DRUGS (1)
  1. ABILIFY MAINTENA [Suspect]
     Active Substance: ARIPIPRAZOLE
     Indication: Post-traumatic stress disorder
     Dosage: 400MG PER VIAL, INJECT 1ML INTO MUSCLE EVERY 28 DAYS AS DIRECTED
     Route: 065

REACTIONS (2)
  - Product container issue [Unknown]
  - Product use in unapproved indication [Unknown]
